FAERS Safety Report 15382228 (Version 2)
Quarter: 2019Q1

REPORT INFORMATION
  Report Type: Spontaneous
  Country: US (occurrence: US)
  Receive Date: 20180913
  Receipt Date: 20190208
  Transmission Date: 20190417
  Serious: Yes (Other)
  Sender: FDA-Public Use
  Company Number: US-ASTELLAS-2018US009297

PATIENT
  Sex: Male

DRUGS (1)
  1. XTANDI [Suspect]
     Active Substance: ENZALUTAMIDE
     Indication: PROSTATE CANCER
     Dosage: UNK, UNKNOWN FREQ.
     Route: 065
     Dates: start: 200805, end: 201901

REACTIONS (5)
  - Vertigo [Unknown]
  - Pancreatic carcinoma [Unknown]
  - Jaundice [Unknown]
  - Balance disorder [Unknown]
  - Localised infection [Unknown]
